FAERS Safety Report 4953131-1 (Version None)
Quarter: 2006Q1

REPORT INFORMATION
  Report Type: 
  Country: None (occurrence: None)
  Receive Date: 20060320
  Receipt Date: 20060307
  Transmission Date: 20060701
  Serious: Yes (Hospitalization, Other)
  Sender: FDA-Public Use
  Company Number: 2006021967

PATIENT
  Sex: Male

DRUGS (2)
  1. LIPITOR [Suspect]
     Indication: LIPIDS INCREASED
     Dosage: 10 MG (10 MG, 1 IN 1 D)
     Dates: start: 20040101
  2. STATINS (HMG COA REDUCTASE INHIBITORS) [Suspect]
     Indication: ILL-DEFINED DISORDER
     Dates: start: 20040101

REACTIONS (4)
  - ABNORMAL BEHAVIOUR [None]
  - GLOBAL AMNESIA [None]
  - HYPERTENSION [None]
  - LIPIDS INCREASED [None]
